FAERS Safety Report 8901231 (Version 1)
Quarter: 2012Q4

REPORT INFORMATION
  Report Type: Report from Study
  Country: FR (occurrence: FR)
  Receive Date: 20121108
  Receipt Date: 20121108
  Transmission Date: 20130627
  Serious: Yes (Other)
  Sender: FDA-Public Use
  Company Number: FR-ABBOTT-12P-056-1003145-00

PATIENT
  Age: 39 Year
  Sex: Female

DRUGS (3)
  1. RITONAVIR [Suspect]
     Indication: HIV INFECTION
     Route: 048
     Dates: start: 20100904, end: 20120701
  2. TRUVADA [Concomitant]
     Indication: HIV INFECTION
     Dosage: 1 tab/cap
     Route: 048
     Dates: start: 20100904, end: 20120701
  3. REYATAZ [Concomitant]
     Indication: HIV INFECTION
     Route: 048
     Dates: start: 20100904, end: 20120701

REACTIONS (1)
  - Abortion induced [Unknown]
